FAERS Safety Report 4704598-5 (Version None)
Quarter: 2005Q2

REPORT INFORMATION
  Report Type: 
  Country: None (occurrence: None)
  Receive Date: 20050629
  Receipt Date: 20050616
  Transmission Date: 20051028
  Serious: Yes (Other)
  Sender: FDA-Public Use
  Company Number: 2005089719

PATIENT
  Age: 70 Year
  Sex: Male

DRUGS (2)
  1. ESTRACYT (ESTRAMUSTINE PHOSPHATE SODIUM) [Suspect]
     Indication: PROSTATE CANCER
     Dosage: 280 MG (140 MG, DAILY), ORAL
     Dates: start: 20040601
  2. ASPIRIN [Concomitant]

REACTIONS (2)
  - ANAEMIA [None]
  - LEUKOCYTOSIS [None]
